FAERS Safety Report 5948102-2 (Version None)
Quarter: 2008Q4

REPORT INFORMATION
  Report Type: 
  Country: None (occurrence: None)
  Receive Date: 20081107
  Receipt Date: 20081029
  Transmission Date: 20090506
  Serious: Yes (Other)
  Sender: FDA-Public Use
  Company Number: 100#03#2008-05529

PATIENT
  Age: 33 Year
  Sex: Female

DRUGS (1)
  1. CEPHALEXIN [Suspect]
     Indication: URINARY TRACT INFECTION
     Dosage: 1 G TWICE DAILY ORAL
     Route: 048
     Dates: start: 20080814, end: 20080822

REACTIONS (2)
  - LIP OEDEMA [None]
  - URTICARIA [None]
